FAERS Safety Report 6636266-7 (Version None)
Quarter: 2010Q1

REPORT INFORMATION
  Report Type: 
  Country: None (occurrence: None)
  Receive Date: 20100316
  Receipt Date: 20100302
  Transmission Date: 20100710
  Serious: Yes (Hospitalization)
  Sender: FDA-Public Use
  Company Number: DE-CELGENEUS-062-C5013-09111494

PATIENT
  Age: 75 Year
  Sex: Male
  Weight: 83 kg

DRUGS (12)
  1. CC-5013 [Suspect]
     Indication: MULTIPLE MYELOMA
     Route: 048
     Dates: start: 20090722, end: 20091110
  2. DEXAMETHASONE [Suspect]
     Indication: MULTIPLE MYELOMA
     Route: 065
     Dates: start: 20090722, end: 20091111
  3. GLIMEPIRIDE [Concomitant]
     Indication: DIABETES MELLITUS
     Route: 065
  4. METOHEXAL SUCC [Concomitant]
     Indication: HYPERTENSION
     Route: 065
  5. METFORMIN [Concomitant]
     Indication: DIABETES MELLITUS
     Route: 065
  6. ALLOPURINOL [Concomitant]
     Route: 065
  7. PANTOPRAZOL [Concomitant]
     Route: 065
  8. CLEXANE [Concomitant]
     Indication: ATRIAL FLUTTER
     Route: 065
     Dates: start: 20080705
  9. CETRIZIN [Concomitant]
     Route: 065
  10. RAMIPRIL [Concomitant]
     Indication: HYPERTENSION
     Route: 065
     Dates: start: 20090916
  11. TORSEMIDE [Concomitant]
     Indication: OEDEMA
     Route: 065
     Dates: start: 20090916
  12. ZOMETA [Concomitant]
     Indication: MULTIPLE MYELOMA
     Route: 065

REACTIONS (1)
  - FEBRILE BONE MARROW APLASIA [None]
